FAERS Safety Report 5442462-7 (Version None)
Quarter: 2007Q3

REPORT INFORMATION
  Report Type: 
  Country: None (occurrence: None)
  Receive Date: 20070904
  Receipt Date: 20070823
  Transmission Date: 20080115
  Serious: Yes (Other)
  Sender: FDA-Public Use
  Company Number: GB-PFIZER INC-2007071884

PATIENT
  Age: 23 Year
  Sex: Male

DRUGS (3)
  1. VARENICLINE TABLETS [Suspect]
     Indication: SMOKING CESSATION THERAPY
     Route: 048
     Dates: start: 20070111, end: 20070117
  2. DEXAMFETAMINE [Concomitant]
     Indication: BIPOLAR DISORDER
     Route: 048
  3. RISPERDAL [Concomitant]
     Indication: MENTAL DISORDER
     Route: 048

REACTIONS (22)
  - ABDOMINAL PAIN [None]
  - ANOREXIA [None]
  - ASTHENIA [None]
  - CONSTIPATION [None]
  - DAYDREAMING [None]
  - DEPRESSION [None]
  - DISTURBANCE IN ATTENTION [None]
  - DYSPNOEA [None]
  - FATIGUE [None]
  - FEELING COLD [None]
  - GAIT DISTURBANCE [None]
  - HALLUCINATION [None]
  - MOOD SWINGS [None]
  - MYALGIA [None]
  - NIGHTMARE [None]
  - PANIC ATTACK [None]
  - SOMNOLENCE [None]
  - TREMOR [None]
  - VERTIGO [None]
  - VIRAL INFECTION [None]
  - VISUAL DISTURBANCE [None]
  - VOMITING [None]
